FAERS Safety Report 16779014 (Version 1)
Quarter: 2019Q3

REPORT INFORMATION
  Report Type: Spontaneous
  Country: GB (occurrence: GB)
  Receive Date: 20190906
  Receipt Date: 20190906
  Transmission Date: 20191005
  Serious: Yes (Life-Threatening)
  Sender: FDA-Public Use
  Company Number: GB-TEVA-2019-GB-1102813

PATIENT
  Age: 81 Year
  Sex: Male
  Weight: 55 kg

DRUGS (16)
  1. ATORVASTATIN [Concomitant]
     Active Substance: ATORVASTATIN
  2. FERROUS FUMARATE [Concomitant]
     Active Substance: FERROUS FUMARATE
  3. CLOPIDOGREL [Concomitant]
     Active Substance: CLOPIDOGREL BISULFATE
  4. PARACETAMOL [Concomitant]
     Active Substance: ACETAMINOPHEN
  5. SIRDUPLA [Concomitant]
     Active Substance: FLUTICASONE PROPIONATE\SALMETEROL XINAFOATE
  6. LANSOPRAZOLE. [Concomitant]
     Active Substance: LANSOPRAZOLE
  7. CIPROFLOXACIN HYDROCHLORIDE. [Concomitant]
     Active Substance: CIPROFLOXACIN HYDROCHLORIDE
  8. SPIRIVA [Concomitant]
     Active Substance: TIOTROPIUM BROMIDE MONOHYDRATE
  9. CARBOCISTEINE [Concomitant]
     Active Substance: CARBOCYSTEINE
  10. QUININE [Concomitant]
     Active Substance: QUININE
  11. PREGABALIN. [Concomitant]
     Active Substance: PREGABALIN
  12. METRONIDAZOLE. [Concomitant]
     Active Substance: METRONIDAZOLE
  13. LINEZOLID. [Suspect]
     Active Substance: LINEZOLID
     Indication: INFECTIOUS PLEURAL EFFUSION
     Dosage: 1200 MG, 1 DAY
     Route: 048
     Dates: start: 20190726
  14. PREDNISOLONE. [Concomitant]
     Active Substance: PREDNISOLONE
  15. FOLIC ACID. [Concomitant]
     Active Substance: FOLIC ACID
  16. TEVA UK SALBUTAMOL [Concomitant]

REACTIONS (1)
  - Thrombocytopenia [Unknown]

NARRATIVE: CASE EVENT DATE: 20190807
